FAERS Safety Report 19356460 (Version 5)
Quarter: 2022Q2

REPORT INFORMATION
  Report Type: Spontaneous
  Country: US (occurrence: US)
  Receive Date: 20210601
  Receipt Date: 20220531
  Transmission Date: 20220721
  Serious: Yes (Other)
  Sender: FDA-Public Use
  Company Number: US-SA-SAC20210528000804

PATIENT
  Age: 40 Year
  Sex: Female

DRUGS (2)
  1. FABRAZYME [Suspect]
     Active Substance: AGALSIDASE BETA
     Indication: Fabry^s disease
     Dosage: 110 MG,
     Route: 042
     Dates: start: 20200420
  2. FABRAZYME [Suspect]
     Active Substance: AGALSIDASE BETA
     Dosage: 110 MG,
     Route: 042
     Dates: start: 20201214

REACTIONS (4)
  - Nephrolithiasis [Unknown]
  - Back pain [Unknown]
  - Weight increased [Unknown]
  - Abdominal pain [Unknown]

NARRATIVE: CASE EVENT DATE: 20220301
